FAERS Safety Report 16473303 (Version 3)
Quarter: 2019Q4

REPORT INFORMATION
  Report Type: Report from Study
  Country: GB (occurrence: GB)
  Receive Date: 20190625
  Receipt Date: 20191009
  Transmission Date: 20200122
  Serious: Yes (Other)
  Sender: FDA-Public Use
  Company Number: GB-MYLANLABS-2019M1057714

PATIENT
  Age: 31 Year
  Sex: Female

DRUGS (3)
  1. GILENYA [Suspect]
     Active Substance: FINGOLIMOD HYDROCHLORIDE
     Dosage: 1 DOSAGE FORM, QD
     Route: 048
  2. GILENYA [Suspect]
     Active Substance: FINGOLIMOD HYDROCHLORIDE
     Indication: MULTIPLE SCLEROSIS
     Dosage: 1 DOSAGE FORM, QD
     Route: 048
     Dates: start: 20140722, end: 20150419
  3. SALBUTAMOL [Suspect]
     Active Substance: ALBUTEROL
     Indication: ASTHMA
     Dosage: UNK
     Route: 065

REACTIONS (13)
  - Abnormal dreams [Unknown]
  - Flushing [Recovered/Resolved]
  - Asthma [Recovered/Resolved]
  - Stress urinary incontinence [Unknown]
  - Wheezing [Recovered/Resolved]
  - Disturbance in attention [Unknown]
  - Urinary retention [Unknown]
  - Central nervous system lesion [Unknown]
  - Dysphagia [Recovered/Resolved]
  - Muscle spasms [Unknown]
  - Intervertebral disc disorder [Unknown]
  - Back pain [Unknown]
  - Micturition urgency [Unknown]

NARRATIVE: CASE EVENT DATE: 20160120
